FAERS Safety Report 8848958 (Version 2)
Quarter: 2013Q1

REPORT INFORMATION
  Report Type: Spontaneous
  Country: US (occurrence: None)
  Receive Date: 20121016
  Receipt Date: 20121217
  Transmission Date: 20140127
  Serious: Yes (Other)
  Sender: FDA-Public Use
  Company Number: NSR_00682_2012

PATIENT
  Age: 28 Year
  Sex: Female

DRUGS (4)
  1. TRAMADOL [Suspect]
     Indication: PRODUCT USED FOR UNKNOWN INDICATION
     Dosage: DF, (APPROXIMATELY 600 TO 800 MG, DAILY, DURING THE PAST 2 DAYS)
  2. ESCITALOPRAM [Concomitant]
  3. NAPROXEN [Concomitant]
  4. OMEPRAZOLE [Concomitant]

REACTIONS (8)
  - Amnesia [None]
  - Complex partial seizures [None]
  - Tachycardia [None]
  - Sympathomimetic effect [None]
  - Toxicity to various agents [None]
  - Postictal state [None]
  - Blood glucose increased [None]
  - False positive investigation result [None]
